FAERS Safety Report 25510858 (Version 2)
Quarter: 2025Q3

REPORT INFORMATION
  Report Type: Report from Study
  Country: TH (occurrence: TH)
  Receive Date: 20250703
  Receipt Date: 20250730
  Transmission Date: 20251021
  Serious: Yes (Other)
  Sender: TAKEDA
  Company Number: TH-TAKEDA-2021TUS042103

PATIENT
  Sex: Male

DRUGS (1)
  1. VEDOLIZUMAB [Suspect]
     Active Substance: VEDOLIZUMAB
     Indication: Colitis ulcerative
     Dates: start: 20200812, end: 20250508

REACTIONS (4)
  - Colitis ulcerative [Unknown]
  - Anal abscess [Recovered/Resolved]
  - Therapy non-responder [Unknown]
  - Diarrhoea [Unknown]
